FAERS Safety Report 7985233-X (Version None)
Quarter: 2011Q4

REPORT INFORMATION
  Report Type: 
  Country: None (occurrence: None)
  Receive Date: 20111216
  Receipt Date: 20100907
  Transmission Date: 20120403
  Serious: Yes (Life-Threatening)
  Sender: FDA-Public Use
  Company Number: PHHY2010US092767

PATIENT

DRUGS (2)
  1. DOCETAXEL [Suspect]
     Dosage: 75 MG/M2, UNK
     Route: 042
  2. EVEROLIMUS [Suspect]
     Dosage: 7.5 MG,DAILY
     Route: 048

REACTIONS (1)
  - FEBRILE NEUTROPENIA [None]
